FAERS Safety Report 8383279-3 (Version None)
Quarter: 2012Q2

REPORT INFORMATION
  Report Type: 
  Country: None (occurrence: None)
  Receive Date: 20120524
  Receipt Date: 20120517
  Transmission Date: 20120825
  Serious: Yes (Other)
  Sender: FDA-Public Use
  Company Number: CA-SANOFI-AVENTIS-2012SA035484

PATIENT
  Age: 52 Year
  Sex: Female

DRUGS (12)
  1. TRASTUZUMAB [Suspect]
     Route: 042
  2. ATORVASTATIN CALCIUM [Concomitant]
     Route: 048
  3. CYTOXAN [Concomitant]
  4. DOCETAXEL [Suspect]
     Route: 065
  5. METFORMIN HCL [Concomitant]
     Route: 048
  6. EPIRUBICIN [Concomitant]
  7. FLUOROURACIL [Concomitant]
  8. PACLITAXEL [Concomitant]
  9. DEXAMETHASONE TAB [Suspect]
     Route: 065
  10. METFORMIN HCL [Concomitant]
     Route: 048
  11. ASPIRIN [Concomitant]
     Route: 048
  12. NEULASTA [Concomitant]
     Indication: PROPHYLAXIS

REACTIONS (4)
  - EJECTION FRACTION [None]
  - HYPERGLYCAEMIA [None]
  - INFUSION RELATED REACTION [None]
  - ANXIETY [None]
